FAERS Safety Report 4936842-3 (Version None)
Quarter: 2006Q1

REPORT INFORMATION
  Report Type: 
  Country: None (occurrence: None)
  Receive Date: 20060307
  Receipt Date: 20060228
  Transmission Date: 20060701
  Serious: Yes (Hospitalization)
  Sender: FDA-Public Use
  Company Number: US-MERCK-0603USA00146

PATIENT
  Age: 39 Year
  Sex: Female
  Weight: 77 kg

DRUGS (7)
  1. VIOXX [Suspect]
     Indication: PAIN
     Route: 048
     Dates: start: 19990601, end: 20010401
  2. VIOXX [Suspect]
     Route: 048
     Dates: start: 19990601, end: 20010401
  3. BEXTRA [Concomitant]
     Route: 065
     Dates: start: 19990701, end: 20010401
  4. IBUPROFEN [Concomitant]
     Route: 065
     Dates: start: 20000109, end: 20051001
  5. ULTRAM [Concomitant]
     Route: 065
     Dates: start: 20010105
  6. AMITRIPTYLIN [Concomitant]
     Route: 065
     Dates: start: 20000810
  7. HYDROCHLOROTHIAZIDE [Concomitant]
     Route: 065
     Dates: start: 19850101

REACTIONS (4)
  - CEREBROVASCULAR ACCIDENT [None]
  - DYSPEPSIA [None]
  - HEADACHE [None]
  - MYOCARDIAL INFARCTION [None]
